FAERS Safety Report 17945976 (Version 1)
Quarter: 2020Q2

REPORT INFORMATION
  Report Type: Spontaneous
  Country: FR (occurrence: FR)
  Receive Date: 20200626
  Receipt Date: 20200626
  Transmission Date: 20200714
  Serious: Yes (Hospitalization, Other)
  Sender: FDA-Public Use
  Company Number: FR-BRISTOL-MYERS SQUIBB COMPANY-BMS-2020-048725

PATIENT
  Age: 89 Year
  Sex: Female
  Weight: 56 kg

DRUGS (2)
  1. ELIQUIS [Suspect]
     Active Substance: APIXABAN
     Indication: CORONARY ARTERY DISEASE
     Dosage: 2 DOSAGE FORM, PER DAY
     Route: 048
     Dates: end: 20200410
  2. PLAVIX [Interacting]
     Active Substance: CLOPIDOGREL BISULFATE
     Indication: ATRIAL FIBRILLATION
     Dosage: 1 DOSAGE FORM, PER DAY
     Route: 048
     Dates: start: 202004

REACTIONS (5)
  - Condition aggravated [Recovered/Resolved]
  - Anaemia [Recovered/Resolved]
  - Labelled drug-drug interaction medication error [Unknown]
  - Intentional product use issue [Unknown]
  - Melaena [Recovered/Resolved]
